FAERS Safety Report 7513963-2 (Version None)
Quarter: 2011Q2

REPORT INFORMATION
  Report Type: 
  Country: None (occurrence: None)
  Receive Date: 20110531
  Receipt Date: 20110525
  Transmission Date: 20111010
  Serious: Yes (Death)
  Sender: FDA-Public Use
  Company Number: JP-PFIZER INC-2011112309

PATIENT
  Age: 69 Year
  Sex: Female

DRUGS (1)
  1. METHYLPREDNISOLONE SODIUM SUCCINATE [Suspect]
     Indication: MICROSCOPIC POLYANGIITIS
     Dosage: 500 MG

REACTIONS (3)
  - HEPATIC FUNCTION ABNORMAL [None]
  - PNEUMOTHORAX [None]
  - PNEUMONIA [None]
